FAERS Safety Report 19726056 (Version 7)
Quarter: 2022Q2

REPORT INFORMATION
  Report Type: Report from Study
  Country: IL (occurrence: IL)
  Receive Date: 20210820
  Receipt Date: 20220617
  Transmission Date: 20220721
  Serious: Yes (Death, Life-Threatening, Hospitalization)
  Sender: FDA-Public Use
  Company Number: IL-ABBVIE-21K-082-4047355-00

PATIENT
  Age: 80 Year
  Sex: Female
  Weight: 100 kg

DRUGS (19)
  1. VENETOCLAX [Suspect]
     Active Substance: VENETOCLAX
     Indication: Acute myeloid leukaemia
     Route: 048
     Dates: start: 20210519, end: 20210519
  2. VENETOCLAX [Suspect]
     Active Substance: VENETOCLAX
     Route: 048
     Dates: start: 20210520, end: 20210520
  3. VENETOCLAX [Suspect]
     Active Substance: VENETOCLAX
     Route: 048
     Dates: start: 20210521, end: 20210608
  4. AZACITIDINE [Suspect]
     Active Substance: AZACITIDINE
     Indication: Acute myeloid leukaemia
     Route: 058
     Dates: start: 20210519, end: 20210519
  5. AZACITIDINE [Suspect]
     Active Substance: AZACITIDINE
     Route: 058
     Dates: start: 20100520, end: 20210520
  6. AZACITIDINE [Suspect]
     Active Substance: AZACITIDINE
     Route: 058
     Dates: start: 20210523, end: 20210523
  7. AZACITIDINE [Suspect]
     Active Substance: AZACITIDINE
     Route: 058
     Dates: start: 20210524, end: 20210524
  8. AZACITIDINE [Suspect]
     Active Substance: AZACITIDINE
     Route: 058
     Dates: start: 20210525, end: 20210525
  9. AZACITIDINE [Suspect]
     Active Substance: AZACITIDINE
     Route: 058
     Dates: start: 20210526, end: 20210526
  10. AZACITIDINE [Suspect]
     Active Substance: AZACITIDINE
     Route: 058
     Dates: start: 20210527, end: 20210527
  11. NEXIUM [Concomitant]
     Active Substance: ESOMEPRAZOLE MAGNESIUM
     Indication: Dyspepsia
     Dates: start: 20190214
  12. LOSARTAN [Concomitant]
     Active Substance: LOSARTAN
     Indication: Hypertension
     Dates: start: 20180725
  13. SIMVASTATIN [Concomitant]
     Active Substance: SIMVASTATIN
     Indication: Blood cholesterol increased
     Dates: start: 20090706
  14. OPTI SAFE [Concomitant]
     Indication: Eye disorder
     Dates: start: 20181210
  15. ALLOPURINOL [Concomitant]
     Active Substance: ALLOPURINOL
     Indication: Prophylaxis
     Dates: start: 20210512, end: 20210622
  16. TOVIAZ [Concomitant]
     Active Substance: FESOTERODINE FUMARATE
     Indication: Bladder disorder
     Dates: start: 20180725
  17. CIPRALEX [Concomitant]
     Active Substance: ESCITALOPRAM OXALATE
     Indication: Stress
     Dates: start: 20210523, end: 20210624
  18. OXAZEPAM [Concomitant]
     Active Substance: OXAZEPAM
     Indication: Stress
     Dates: start: 20210624
  19. DECITABINE [Concomitant]
     Active Substance: DECITABINE
     Indication: Product used for unknown indication

REACTIONS (14)
  - Febrile neutropenia [Fatal]
  - Hyponatraemia [Recovered/Resolved]
  - Urticaria [Recovered/Resolved]
  - Oropharyngeal pain [Recovered/Resolved]
  - Thrombocytopenia [Recovered/Resolved]
  - Oedema peripheral [Recovered/Resolved]
  - Hypokalaemia [Recovered/Resolved]
  - Obesity [Recovered/Resolved]
  - Asthenia [Recovered/Resolved]
  - Anaemia [Recovered/Resolved]
  - Diarrhoea [Recovered/Resolved]
  - Diarrhoea [Recovered/Resolved]
  - Constipation [Recovered/Resolved]
  - Diarrhoea [Recovered/Resolved]

NARRATIVE: CASE EVENT DATE: 20210520
